FAERS Safety Report 9185941 (Version 1)
Quarter: 2013Q1

REPORT INFORMATION
  Report Type: Spontaneous
  Country: US (occurrence: US)
  Receive Date: 20130325
  Receipt Date: 20130325
  Transmission Date: 20140127
  Serious: Yes (Other)
  Sender: FDA-Public Use
  Company Number: US-ELI_LILLY_AND_COMPANY-US201303006327

PATIENT
  Sex: Male

DRUGS (1)
  1. HUMALOG LISPRO [Suspect]
     Indication: BLOOD GLUCOSE INCREASED
     Dosage: UNK, PRN

REACTIONS (4)
  - Renal disorder [Unknown]
  - Drug ineffective [Unknown]
  - Blood glucose increased [Unknown]
  - Incorrect dose administered [Unknown]
